FAERS Safety Report 15436451 (Version 1)
Quarter: 2018Q3

REPORT INFORMATION
  Report Type: Spontaneous
  Country: JP (occurrence: JP)
  Receive Date: 20180927
  Receipt Date: 20180927
  Transmission Date: 20181010
  Serious: Yes (Death, Hospitalization, Other)
  Sender: FDA-Public Use
  Company Number: JP-ELI_LILLY_AND_COMPANY-JP201806003946

PATIENT
  Age: 65 Year
  Sex: Male
  Weight: 43 kg

DRUGS (8)
  1. PACLITAXEL ALBUMIN [Suspect]
     Active Substance: PACLITAXEL
     Indication: ADENOCARCINOMA GASTRIC
     Dosage: 100 MG, OTHER
     Route: 042
     Dates: start: 20180117, end: 20180529
  2. LAXOBERON [Concomitant]
     Active Substance: SODIUM PICOSULFATE
     Dosage: UNK, PRN
     Dates: start: 20180117, end: 20180604
  3. MAGNESIUM OXIDE. [Concomitant]
     Active Substance: MAGNESIUM OXIDE
     Dosage: 3 DF, DAILY
     Route: 048
     Dates: start: 20171204, end: 20180604
  4. TAKECAB [Concomitant]
     Active Substance: VONOPRAZAN FUMURATE
     Dosage: 20 MG, DAILY
     Route: 048
     Dates: start: 20170710, end: 20180604
  5. MARZULENE S COMBINATION [Concomitant]
     Active Substance: GLUTAMINE\SODIUM GUALENATE
     Dosage: 1.33 G, DAILY
     Route: 048
     Dates: start: 20170619, end: 20180604
  6. CYRAMZA [Suspect]
     Active Substance: RAMUCIRUMAB
     Indication: ADENOCARCINOMA GASTRIC
     Dosage: 400 MG, OTHER
     Route: 042
     Dates: start: 20180117, end: 20180529
  7. MIYA?BM [Concomitant]
     Active Substance: CLOSTRIDIUM BUTYRICUM SPORES STRAIN M-55
     Dosage: 2 DF, DAILY
     Route: 048
     Dates: start: 20170428, end: 20180604
  8. RINDERON                           /00008501/ [Concomitant]
     Active Substance: BETAMETHASONE
     Indication: PROPHYLAXIS OF NAUSEA AND VOMITING
     Dosage: 6 MG, DAILY
     Route: 048
     Dates: start: 20180117, end: 20180604

REACTIONS (4)
  - Disseminated intravascular coagulation [Recovered/Resolved]
  - Death [Fatal]
  - Peritonitis [Unknown]
  - Tumour perforation [Recovered/Resolved with Sequelae]

NARRATIVE: CASE EVENT DATE: 201806
